FAERS Safety Report 19289741 (Version 1)
Quarter: 2021Q2

REPORT INFORMATION
  Report Type: Spontaneous
  Country: US (occurrence: US)
  Receive Date: 20210521
  Receipt Date: 20210521
  Transmission Date: 20210717
  Serious: No
  Sender: FDA-Public Use
  Company Number: US-RADIUS HEALTH INC.-2020US003696

PATIENT
  Sex: Female
  Weight: 63.49 kg

DRUGS (4)
  1. TYMLOS [Suspect]
     Active Substance: ABALOPARATIDE
     Dosage: UNK
     Route: 058
     Dates: start: 20201103, end: 20201106
  2. VITAMIN D NOS [Concomitant]
     Active Substance: VITAMIN D NOS
  3. TYMLOS [Suspect]
     Active Substance: ABALOPARATIDE
     Indication: SENILE OSTEOPOROSIS
     Dosage: 80MCG/QD
     Route: 058
     Dates: start: 202010
  4. TYMLOS [Suspect]
     Active Substance: ABALOPARATIDE
     Indication: PATHOLOGICAL FRACTURE
     Dosage: 40MCG,QD
     Route: 058
     Dates: start: 20201022, end: 20201030

REACTIONS (8)
  - Off label use [Recovered/Resolved]
  - Chest discomfort [Recovered/Resolved]
  - Palpitations [Recovered/Resolved]
  - Injection site erythema [Recovered/Resolved]
  - Hypersensitivity [Recovered/Resolved]
  - Back pain [Recovered/Resolved]
  - Rash erythematous [Recovered/Resolved]
  - Headache [Recovered/Resolved]
